FAERS Safety Report 9498411 (Version 1)
Quarter: 2013Q3

REPORT INFORMATION
  Report Type: Report from Study
  Country: US (occurrence: US)
  Receive Date: 20130904
  Receipt Date: 20130904
  Transmission Date: 20140515
  Serious: Yes (Hospitalization)
  Sender: FDA-Public Use
  Company Number: US-GLAXOSMITHKLINE-A1039589A

PATIENT
  Age: 61 Year
  Sex: Male
  Weight: 128.6 kg

DRUGS (26)
  1. CARVEDILOL [Suspect]
     Indication: HYPERTENSION
     Dosage: 6.25MG TWICE PER DAY
     Dates: start: 20121114
  2. METOLAZONE [Suspect]
     Indication: CARDIAC FAILURE CONGESTIVE
     Dosage: 5MG ALTERNATE DAYS
     Dates: start: 201301
  3. PREDNISONE [Suspect]
     Indication: ASTHMA
     Dosage: 10MG PER DAY
     Dates: start: 20120628
  4. MIDODRINE [Suspect]
     Indication: HYPOTENSION
     Dosage: 5MG PER DAY
     Route: 048
     Dates: start: 201210
  5. AMIODARONE [Suspect]
     Indication: VENTRICULAR FIBRILLATION
     Dosage: 220MG PER DAY
     Route: 048
  6. BLINDED TRIAL MEDICATION [Concomitant]
     Indication: ARTHRITIS
     Dates: end: 20121120
  7. ROFLUMILAST [Concomitant]
  8. NIZORAL [Concomitant]
     Dates: start: 2005
  9. FUROSEMIDE [Concomitant]
     Dates: start: 20121207
  10. DULERA [Concomitant]
     Dates: start: 20120115
  11. SPIRIVA [Concomitant]
     Dates: start: 20120115
  12. LISINOPRIL [Concomitant]
     Dates: start: 20121114
  13. LIDOCAINE [Concomitant]
     Dates: start: 2004
  14. LORATADINE [Concomitant]
     Dates: start: 1992
  15. PLAVIX [Concomitant]
     Dates: start: 1999
  16. SPIRONOLACTONE [Concomitant]
     Dates: start: 1999
  17. FLONASE [Concomitant]
     Dates: start: 2003
  18. LEVOTHYROXINE [Concomitant]
     Dates: start: 20121219
  19. LIPITOR [Concomitant]
     Dates: start: 201210
  20. DRISDOL [Concomitant]
     Dates: start: 201210
  21. DIAZEPAM [Concomitant]
     Dates: start: 1995
  22. AMBIEN [Concomitant]
     Dates: start: 2005
  23. BACLOFEN [Concomitant]
  24. ALDACTONE [Concomitant]
     Dates: start: 201301
  25. NEXIUM [Concomitant]
  26. MOMETASONE [Concomitant]

REACTIONS (1)
  - Cardiac failure chronic [Recovered/Resolved]
